FAERS Safety Report 14563918 (Version 1)
Quarter: 2018Q1

REPORT INFORMATION
  Report Type: Spontaneous
  Country: US (occurrence: US)
  Receive Date: 20180222
  Receipt Date: 20180222
  Transmission Date: 20180509
  Serious: No
  Sender: FDA-Public Use
  Company Number: None

PATIENT
  Age: 60 Year
  Sex: Female
  Weight: 63.5 kg

DRUGS (22)
  1. FIBERCON [Concomitant]
     Active Substance: CALCIUM POLYCARBOPHIL
  2. VITAMIN D3 [Concomitant]
     Active Substance: CHOLECALCIFEROL
  3. MULTIVITAMIN OVER 50 WOMENS^NATURE MADE [Concomitant]
  4. ASA [Concomitant]
     Active Substance: ASPIRIN
  5. LATANOPROST. [Concomitant]
     Active Substance: LATANOPROST
  6. BYSTOLIC [Concomitant]
     Active Substance: NEBIVOLOL HYDROCHLORIDE
  7. SUDAFED [Concomitant]
     Active Substance: PSEUDOEPHEDRINE HYDROCHLORIDE
  8. EVENING PRIMROSE OIL [Concomitant]
     Active Substance: EVENING PRIMROSE OIL\HERBALS
  9. ECHINACEA [Concomitant]
     Active Substance: ECHINACEA, UNSPECIFIED
  10. VITAMIN C [Concomitant]
     Active Substance: ASCORBIC ACID
  11. REPATHA [Suspect]
     Active Substance: EVOLOCUMAB
     Indication: CORONARY ARTERY DISEASE
     Dosage: 140MG/ML 1 EVERY 2 WEEKS SURECLICK INJECTION
     Dates: start: 201611
  12. REPATHA [Suspect]
     Active Substance: EVOLOCUMAB
     Indication: HYPERLIPIDAEMIA
     Dosage: 140MG/ML 1 EVERY 2 WEEKS SURECLICK INJECTION
     Dates: start: 201611
  13. VITAMIN B COMPLEX WITH ZINC [Concomitant]
  14. CELEBREX [Concomitant]
     Active Substance: CELECOXIB
  15. LUTEIN + ZEAXANTHIN [Concomitant]
  16. COENZYME Q10 [Concomitant]
     Active Substance: UBIDECARENONE
  17. CLARITIN [Concomitant]
     Active Substance: LORATADINE
  18. L-LYSINE [Concomitant]
     Active Substance: LYSINE
  19. NEXIUM [Concomitant]
     Active Substance: ESOMEPRAZOLE MAGNESIUM
  20. FLONASE (GENERIC) [Concomitant]
  21. MAGNESIUM [Concomitant]
     Active Substance: MAGNESIUM
  22. MELATONIN [Concomitant]
     Active Substance: MELATONIN

REACTIONS (2)
  - Oestradiol abnormal [None]
  - Alopecia [None]
